FAERS Safety Report 6882490-8 (Version None)
Quarter: 2010Q3

REPORT INFORMATION
  Report Type: 
  Country: None (occurrence: None)
  Receive Date: 20100728
  Receipt Date: 20100728
  Transmission Date: 20110219
  Serious: Yes (Hospitalization)
  Sender: FDA-Public Use
  Company Number: None

PATIENT
  Age: 70 Year
  Sex: Female
  Weight: 63.2 kg

DRUGS (9)
  1. ZYPREXA [Suspect]
     Indication: BIPOLAR DISORDER
     Dosage: 10MG PO AT BEDTIME ; 12.5 MG PO QHS
     Route: 048
     Dates: start: 19981201, end: 20081201
  2. ZYPREXA [Suspect]
     Indication: BIPOLAR DISORDER
     Dosage: 10MG PO AT BEDTIME ; 12.5 MG PO QHS
     Route: 048
     Dates: start: 20081230
  3. FLUTICASON NASAL SPRAY [Concomitant]
  4. RANITIDINE [Concomitant]
  5. SINGULAIR [Concomitant]
  6. CLARITIN [Concomitant]
  7. LITHIUM [Concomitant]
  8. ZYPREXA [Concomitant]
  9. PROPRANOLOL [Concomitant]

REACTIONS (4)
  - EXTRAPYRAMIDAL DISORDER [None]
  - METABOLIC DISORDER [None]
  - PSYCHOTIC DISORDER [None]
  - REFUSAL OF TREATMENT BY PATIENT [None]
